FAERS Safety Report 17715057 (Version 2)
Quarter: 2021Q2

REPORT INFORMATION
  Report Type: Spontaneous
  Country: US (occurrence: US)
  Receive Date: 20200427
  Receipt Date: 20210406
  Transmission Date: 20210716
  Serious: Yes (Other)
  Sender: FDA-Public Use
  Company Number: US-ASTRAZENECA-2020SE54630

PATIENT
  Sex: Male
  Weight: 95.3 kg

DRUGS (33)
  1. VERAPAMIL [Concomitant]
     Active Substance: VERAPAMIL HYDROCHLORIDE
     Indication: ANGINA PECTORIS
     Dates: start: 20131004
  2. LOSARTAN. [Concomitant]
     Active Substance: LOSARTAN
     Indication: HYPERTENSION
     Dates: start: 20131004
  3. IPRATROPIUM [Concomitant]
     Active Substance: IPRATROPIUM
  4. METHYLPREDNISOLONE. [Concomitant]
     Active Substance: METHYLPREDNISOLONE
  5. PRILOSEC OTC [Suspect]
     Active Substance: OMEPRAZOLE MAGNESIUM
     Indication: GASTROOESOPHAGEAL REFLUX DISEASE
     Route: 048
     Dates: start: 2003, end: 2010
  6. PREVACID 24 HR [Suspect]
     Active Substance: LANSOPRAZOLE
     Indication: GASTROOESOPHAGEAL REFLUX DISEASE
     Route: 065
     Dates: start: 200301, end: 201001
  7. LISINOPRIL. [Concomitant]
     Active Substance: LISINOPRIL
     Indication: HYPERTENSION
     Dates: start: 20110106, end: 20131004
  8. FLUTICASONE. [Concomitant]
     Active Substance: FLUTICASONE
  9. CEPHALEXIN. [Concomitant]
     Active Substance: CEPHALEXIN
  10. LEVAQUIN [Concomitant]
     Active Substance: LEVOFLOXACIN
  11. PROVENTIL [Concomitant]
     Active Substance: ALBUTEROL
  12. PRILOSEC OTC [Suspect]
     Active Substance: OMEPRAZOLE MAGNESIUM
     Indication: GASTROOESOPHAGEAL REFLUX DISEASE
     Route: 048
     Dates: start: 200301, end: 201001
  13. DIAZEPAM. [Concomitant]
     Active Substance: DIAZEPAM
  14. ONDANSETRON [Concomitant]
     Active Substance: ONDANSETRON
  15. TESTOSTERONE. [Concomitant]
     Active Substance: TESTOSTERONE
  16. CELEBREX [Concomitant]
     Active Substance: CELECOXIB
     Indication: ARTHRALGIA
     Dates: start: 20130220
  17. OXYCODONE [Concomitant]
     Active Substance: OXYCODONE
  18. PREVACID 24 HR [Suspect]
     Active Substance: LANSOPRAZOLE
     Indication: GASTROOESOPHAGEAL REFLUX DISEASE
     Route: 065
     Dates: start: 2009, end: 2017
  19. LOSARTAN POTASSIUM. [Concomitant]
     Active Substance: LOSARTAN POTASSIUM
  20. ONDANSETRON [Concomitant]
     Active Substance: ONDANSETRON
  21. PREDNISONE. [Concomitant]
     Active Substance: PREDNISONE
  22. RELPAX [Concomitant]
     Active Substance: ELETRIPTAN HYDROBROMIDE
     Indication: MIGRAINE
     Dates: start: 20130220
  23. TAGAMET [Concomitant]
     Active Substance: CIMETIDINE
  24. NEXIUM 24HR [Suspect]
     Active Substance: ESOMEPRAZOLE MAGNESIUM
     Indication: GASTROOESOPHAGEAL REFLUX DISEASE
     Route: 048
     Dates: start: 2014, end: 2017
  25. MECLIZINE [Concomitant]
     Active Substance: MECLIZINE HYDROCHLORIDE
     Indication: DIZZINESS
     Dates: start: 201201
  26. MELOXICAM. [Concomitant]
     Active Substance: MELOXICAM
     Indication: ARTHRITIS
     Dates: start: 20130220
  27. TYLENOL [Concomitant]
     Active Substance: ACETAMINOPHEN
     Indication: PAIN
  28. LEVOTHYROXINE. [Concomitant]
     Active Substance: LEVOTHYROXINE
  29. ELETRIPTAN. [Concomitant]
     Active Substance: ELETRIPTAN
  30. FLUTICASONE. [Concomitant]
     Active Substance: FLUTICASONE
  31. GABAPENTIN. [Concomitant]
     Active Substance: GABAPENTIN
     Indication: NEURALGIA
     Dates: start: 20130220
  32. ZANTAC [Concomitant]
     Active Substance: RANITIDINE HYDROCHLORIDE
  33. TAMIFLU [Concomitant]
     Active Substance: OSELTAMIVIR PHOSPHATE

REACTIONS (2)
  - Acute kidney injury [Unknown]
  - Chronic kidney disease [Not Recovered/Not Resolved]
